FAERS Safety Report 17999817 (Version 1)
Quarter: 2020Q3

REPORT INFORMATION
  Report Type: Spontaneous
  Country: FR (occurrence: FR)
  Receive Date: 20200709
  Receipt Date: 20200709
  Transmission Date: 20201103
  Serious: Yes (Other)
  Sender: FDA-Public Use
  Company Number: NVSC2020FR186853

PATIENT
  Sex: Male

DRUGS (2)
  1. ATORVASTATIN CALCIUM. [Suspect]
     Active Substance: ATORVASTATIN CALCIUM
     Indication: BRONCHITIS CHRONIC
     Dosage: 80 MG
     Route: 065
     Dates: start: 2019
  2. ATORVASTATIN CALCIUM. [Suspect]
     Active Substance: ATORVASTATIN CALCIUM
     Indication: BLOOD CHOLESTEROL
     Dosage: 40 MG
     Route: 065

REACTIONS (9)
  - Dysphagia [Unknown]
  - Dizziness [Unknown]
  - Malaise [Unknown]
  - Decreased appetite [Unknown]
  - Myalgia [Unknown]
  - Muscle fatigue [Unknown]
  - Dyspnoea [Unknown]
  - Respiratory failure [Unknown]
  - Muscular weakness [Unknown]
